FAERS Safety Report 4939450-3 (Version None)
Quarter: 2006Q1

REPORT INFORMATION
  Report Type: 
  Country: None (occurrence: None)
  Receive Date: 20060306
  Receipt Date: 20060215
  Transmission Date: 20060701
  Serious: Yes (Hospitalization)
  Sender: FDA-Public Use
  Company Number: 6020411

PATIENT
  Age: 52 Year
  Sex: Male

DRUGS (3)
  1. LODOZ 5 MG  / 6.25 MG (TABLET) (HYDROCHLORIDE, BISOPROLOL FUMARATE) [Suspect]
     Indication: HYPERTENSION
     Dosage: 1,00 DOSAGE FORMS (1 DOSAGE FORMS, 1 IN 1 D) ORAL
     Route: 048
     Dates: start: 20050912, end: 20060107
  2. LIPANTYL [Concomitant]
  3. STRESAM (ETIFOXINE) [Concomitant]

REACTIONS (11)
  - ERECTILE DYSFUNCTION [None]
  - FALL [None]
  - JAW FRACTURE [None]
  - LOSS OF CONSCIOUSNESS [None]
  - MALAISE [None]
  - MULTIPLE FRACTURES [None]
  - ORTHOSTATIC HYPOTENSION [None]
  - OVERWORK [None]
  - SINUS BRADYCARDIA [None]
  - STRESS [None]
  - SYNCOPE [None]
